FAERS Safety Report 24829413 (Version 1)
Quarter: 2025Q1

REPORT INFORMATION
  Report Type: Spontaneous
  Country: KR (occurrence: KR)
  Receive Date: 20250110
  Receipt Date: 20250110
  Transmission Date: 20250408
  Serious: Yes (Other)
  Sender: ORGANON
  Company Number: KR-ORGANON-O2501KOR000694

PATIENT
  Age: 61 Year
  Sex: Female

DRUGS (1)
  1. ATORVASTATIN CALCIUM\EZETIMIBE [Suspect]
     Active Substance: ATORVASTATIN CALCIUM\EZETIMIBE
     Dosage: 1 DOSAGE FORM, QD
     Route: 048
     Dates: start: 20170314, end: 20171017

REACTIONS (1)
  - Nerve degeneration [Not Recovered/Not Resolved]

NARRATIVE: CASE EVENT DATE: 20171020
